FAERS Safety Report 22985376 (Version 4)
Quarter: 2024Q4

REPORT INFORMATION
  Report Type: Spontaneous
  Country: BR (occurrence: BR)
  Receive Date: 20230926
  Receipt Date: 20241008
  Transmission Date: 20250114
  Serious: Yes (Other)
  Sender: CELLTRION
  Company Number: BR-CELLTRION INC.-2023BR004451

PATIENT

DRUGS (9)
  1. INFLIXIMAB [Suspect]
     Active Substance: INFLIXIMAB
     Indication: Diverticulitis
     Dosage: 4 AMPOULES EVERY 8 WEEKS/4 AMPOULES (400MG) EVERY 2 MONTHS
     Route: 042
     Dates: start: 20221025, end: 20230214
  2. INFLIXIMAB [Suspect]
     Active Substance: INFLIXIMAB
     Indication: Crohn^s disease
     Dosage: 4 AMPOULES (400MG) EVERY 1 MONTH
     Route: 042
  3. INFLIXIMAB [Suspect]
     Active Substance: INFLIXIMAB
     Dosage: 4 AMPOULES (400MG) EVERY 2 MONTHS
     Route: 042
     Dates: start: 20240801
  4. ATENOLOL [Concomitant]
     Active Substance: ATENOLOL
     Indication: Angina pectoris
     Dosage: 1 PILL PER DAY; START: 15 YEARS
     Route: 048
  5. HYDROCHLOROTHIAZIDE [Concomitant]
     Active Substance: HYDROCHLOROTHIAZIDE
     Indication: Angina pectoris
     Dosage: 1 PILL PER DAY; START: 15 YEARS AGO
     Route: 048
  6. NIACIN [Concomitant]
     Active Substance: NIACIN
     Indication: Product used for unknown indication
     Route: 065
  7. CARVEDILOL [Concomitant]
     Active Substance: CARVEDILOL
     Indication: Angina pectoris
     Dosage: 1 PILL A DAY
     Route: 048
     Dates: start: 202403, end: 202404
  8. VITAMIN D NOS [Concomitant]
     Active Substance: CHOLECALCIFEROL\ERGOCALCIFEROL
     Indication: Product used for unknown indication
     Dosage: 2 PILLS A DAY
     Route: 048
  9. CALCIUM CARBONATE [Concomitant]
     Active Substance: CALCIUM CARBONATE
     Indication: Product used for unknown indication
     Dosage: 1 PILL A DAY
     Route: 048

REACTIONS (13)
  - Cataract [Unknown]
  - Neuralgia [Unknown]
  - Mobility decreased [Unknown]
  - Swelling face [Unknown]
  - Pulpitis dental [Unknown]
  - Rhinitis [Recovered/Resolved]
  - Sinusitis [Recovered/Resolved]
  - Hypoaesthesia [Unknown]
  - Refusal of treatment by patient [Unknown]
  - Product distribution issue [Unknown]
  - Therapy interrupted [Unknown]
  - Intentional product use issue [Unknown]
  - Intentional dose omission [Unknown]

NARRATIVE: CASE EVENT DATE: 20230222
